FAERS Safety Report 13358019 (Version 6)
Quarter: 2018Q4

REPORT INFORMATION
  Report Type: Report from Study
  Country: FR (occurrence: FR)
  Receive Date: 20170322
  Receipt Date: 20181226
  Transmission Date: 20190204
  Serious: Yes (Death, Hospitalization, Other)
  Sender: FDA-Public Use
  Company Number: FR-BRISTOL-MYERS SQUIBB COMPANY-BMS-2017-022986

PATIENT
  Age: 60 Year
  Sex: Female

DRUGS (8)
  1. INNOHEP [Concomitant]
     Active Substance: TINZAPARIN SODIUM
     Indication: PRODUCT USED FOR UNKNOWN INDICATION
     Dosage: 9000 IU, UNK
     Route: 058
  2. PARACETAMOL [Concomitant]
     Active Substance: ACETAMINOPHEN
     Indication: PAIN
     Dosage: 1 G, UNK
     Route: 065
  3. AVASTIN                            /00848101/ [Suspect]
     Active Substance: SIMVASTATIN
     Indication: LUNG NEOPLASM MALIGNANT
     Dosage: 135 MG, EVERY 15 DAYS
     Route: 042
     Dates: start: 20170221, end: 20170307
  4. NIVOLUMAB [Suspect]
     Active Substance: NIVOLUMAB
     Indication: LUNG NEOPLASM MALIGNANT
     Dosage: 135 MG, Q2WK
     Route: 042
     Dates: start: 20170221, end: 20170307
  5. TAXOL [Suspect]
     Active Substance: PACLITAXEL
     Indication: LUNG NEOPLASM MALIGNANT
     Dosage: 135 MG, EVERY 15 DAYS
     Route: 042
     Dates: start: 20170221, end: 20170307
  6. ACUPAN [Concomitant]
     Active Substance: NEFOPAM HYDROCHLORIDE
     Indication: PAIN
     Dosage: 1 DF, UNK
     Route: 065
  7. ATARAX [Concomitant]
     Active Substance: HYDROXYZINE HYDROCHLORIDE
     Indication: ANXIETY
     Dosage: 1 TAB, UNK
     Route: 065
  8. TRAMADOL. [Concomitant]
     Active Substance: TRAMADOL
     Indication: PAIN
     Dosage: 1 TAB, UNK
     Route: 065

REACTIONS (8)
  - Malignant neoplasm progression [Fatal]
  - Subcutaneous emphysema [Unknown]
  - Hypercapnia [Not Recovered/Not Resolved]
  - Aspiration pleural cavity [Unknown]
  - Acute respiratory failure [Fatal]
  - Respiratory distress [Not Recovered/Not Resolved]
  - Thoracic cavity drainage [Unknown]
  - Septic shock [Fatal]

NARRATIVE: CASE EVENT DATE: 20170307
